FAERS Safety Report 8610853-9 (Version None)
Quarter: 2012Q3

REPORT INFORMATION
  Report Type: 
  Country: None (occurrence: None)
  Receive Date: 20120808
  Receipt Date: 20120724
  Transmission Date: 20120928
  Serious: Yes (Hospitalization)
  Sender: FDA-Public Use
  Company Number: DSU-2012-05969

PATIENT
  Age: 72 Year
  Sex: Male
  Weight: 71.2147 kg

DRUGS (3)
  1. BENICAR HCT [Suspect]
     Indication: HYPERTENSION
     Dosage: 20/12.5 (QD), PER ORAL,  20/12.5 MG (QD), PERORAL
     Route: 048
     Dates: end: 20120601
  2. BENICAR HCT [Suspect]
     Indication: HYPERTENSION
     Dosage: 20/12.5 (QD), PER ORAL,  20/12.5 MG (QD), PERORAL
     Route: 048
     Dates: start: 20120721, end: 20120721
  3. B-COMPLEX (PYRIDOXINE HYDROCHLORIDE, THIAMINE HYDROCHLORIDE, RIBOFLAVI [Concomitant]

REACTIONS (6)
  - COELIAC DISEASE [None]
  - DIARRHOEA [None]
  - WEIGHT DECREASED [None]
  - HYPERHIDROSIS [None]
  - CLOSTRIDIAL INFECTION [None]
  - VOMITING [None]
